FAERS Safety Report 25183333 (Version 1)
Quarter: 2025Q2

REPORT INFORMATION
  Report Type: Spontaneous
  Country: CA (occurrence: CA)
  Receive Date: 20250410
  Receipt Date: 20250410
  Transmission Date: 20250717
  Serious: Yes (Other)
  Sender: SANDOZ
  Company Number: CA-SANDOZ-SDZ2025CA021944

PATIENT
  Age: 45 Year
  Sex: Female

DRUGS (14)
  1. ATORVASTATIN [Suspect]
     Active Substance: ATORVASTATIN
     Dosage: 1 EVERY 1 DAYS
     Route: 065
  2. ATORVASTATIN [Suspect]
     Active Substance: ATORVASTATIN
     Indication: Type IIa hyperlipidaemia
     Route: 065
  3. EZETIMIBE [Suspect]
     Active Substance: EZETIMIBE
     Indication: Product used for unknown indication
     Dosage: 1 EVERY 1 DAYS
     Route: 065
  4. EVKEEZA [Suspect]
     Active Substance: EVINACUMAB-DGNB
     Route: 042
  5. EVKEEZA [Suspect]
     Active Substance: EVINACUMAB-DGNB
     Route: 042
  6. EVKEEZA [Suspect]
     Active Substance: EVINACUMAB-DGNB
     Indication: Type IIa hyperlipidaemia
     Route: 058
  7. EVKEEZA [Suspect]
     Active Substance: EVINACUMAB-DGNB
     Route: 058
  8. JUXTAPID [Suspect]
     Active Substance: LOMITAPIDE MESYLATE
     Route: 065
  9. JUXTAPID [Suspect]
     Active Substance: LOMITAPIDE MESYLATE
     Route: 065
  10. JUXTAPID [Suspect]
     Active Substance: LOMITAPIDE MESYLATE
     Indication: Type IIa hyperlipidaemia
     Route: 065
  11. JUXTAPID [Suspect]
     Active Substance: LOMITAPIDE MESYLATE
     Route: 065
  12. JUXTAPID [Suspect]
     Active Substance: LOMITAPIDE MESYLATE
     Route: 065
  13. ROSUVASTATIN [Suspect]
     Active Substance: ROSUVASTATIN
     Indication: Type IIa hyperlipidaemia
     Dosage: 1 EVERY 1 DAYS
     Route: 065
  14. ROSUVASTATIN [Suspect]
     Active Substance: ROSUVASTATIN
     Route: 065

REACTIONS (4)
  - International normalised ratio increased [Recovering/Resolving]
  - Hepatic steatosis [Recovering/Resolving]
  - Diarrhoea [Recovering/Resolving]
  - Nausea [Recovering/Resolving]
